FAERS Safety Report 9373761 (Version 1)
Quarter: 2013Q2

REPORT INFORMATION
  Report Type: Spontaneous
  Country: US (occurrence: US)
  Receive Date: 20130628
  Receipt Date: 20130628
  Transmission Date: 20140414
  Serious: Yes (Other)
  Sender: FDA-Public Use
  Company Number: PHEH2013US013499

PATIENT
  Sex: Female

DRUGS (7)
  1. RECLAST [Suspect]
     Dosage: UNK UKN, UNK
     Route: 042
     Dates: start: 20090728
  2. CLINDAMYCIN [Suspect]
     Indication: INFECTION
     Dosage: UNK UKN, UNK
  3. PREDNISONE [Concomitant]
     Indication: RHEUMATOID ARTHRITIS
     Dosage: UNK
  4. THYROID THERAPY [Concomitant]
     Indication: THYROID DISORDER
     Dosage: UNK UKN, UNK
  5. ASPIRIN [Concomitant]
     Indication: RHEUMATOID ARTHRITIS
     Dosage: UNK
  6. STRONTIUM [Concomitant]
     Indication: SUPPLEMENTATION THERAPY
     Dosage: UNK UKN, UNK
  7. CALCIUM [Concomitant]
     Indication: SUPPLEMENTATION THERAPY
     Dosage: UNK UKN, UNK

REACTIONS (11)
  - Osteonecrosis of jaw [Unknown]
  - Gingival infection [Unknown]
  - Sinusitis [Unknown]
  - Sciatic nerve neuropathy [Unknown]
  - Gastrointestinal disorder [Unknown]
  - Tooth disorder [Unknown]
  - Tooth loss [Unknown]
  - Loose tooth [Unknown]
  - Arthropathy [Unknown]
  - Influenza [Not Recovered/Not Resolved]
  - Diarrhoea [Unknown]
